FAERS Safety Report 6654486-2 (Version None)
Quarter: 2010Q1

REPORT INFORMATION
  Report Type: 
  Country: None (occurrence: None)
  Receive Date: 20100326
  Receipt Date: 20100316
  Transmission Date: 20100710
  Serious: Yes (Other)
  Sender: FDA-Public Use
  Company Number: US-PFIZER INC-2010034510

PATIENT
  Sex: Female
  Weight: 86 kg

DRUGS (8)
  1. ZYVOX [Suspect]
     Indication: SKIN ULCER
     Dosage: 600 MG, 2X/DAY
     Route: 048
     Dates: start: 20090120
  2. ACETAMINOPHEN [Concomitant]
     Dosage: UNK
  3. CODEINE [Concomitant]
     Dosage: UNK
  4. GABAPENTIN [Concomitant]
     Dosage: UNK
  5. LISINOPRIL [Concomitant]
     Dosage: UNK
  6. HYDROCHLOROTHIAZIDE [Concomitant]
     Dosage: UNK
  7. ALBUTEROL [Concomitant]
     Dosage: UNK
  8. BENADRYL [Concomitant]
     Dosage: UNK

REACTIONS (6)
  - BLINDNESS [None]
  - DIARRHOEA [None]
  - HYPERTENSION [None]
  - MACULAR DEGENERATION [None]
  - SURGERY [None]
  - WHITE BLOOD CELL COUNT DECREASED [None]
